FAERS Safety Report 6026222-4 (Version None)
Quarter: 2008Q4

REPORT INFORMATION
  Report Type: 
  Country: None (occurrence: None)
  Receive Date: 20081230
  Receipt Date: 20081217
  Transmission Date: 20090506
  Serious: Yes (Hospitalization)
  Sender: FDA-Public Use
  Company Number: 2008-04634

PATIENT
  Age: 76 Year
  Sex: Female

DRUGS (3)
  1. VELCADE [Suspect]
     Indication: MULTIPLE MYELOMA
     Dosage: 1.8 MG, INTRAVENOUS
     Route: 042
     Dates: start: 20080804, end: 20081124
  2. PREDNISONE [Suspect]
     Indication: MULTIPLE MYELOMA
     Dosage: 60 MG, ORAL
     Route: 048
     Dates: start: 20080804, end: 20081127
  3. THALIDOMIDE [Suspect]
     Indication: MULTIPLE MYELOMA
     Dosage: 100 MG, ORAL
     Route: 048
     Dates: start: 20080804, end: 20081129

REACTIONS (2)
  - ATRIAL FIBRILLATION [None]
  - TRANSIENT ISCHAEMIC ATTACK [None]
